FAERS Safety Report 7296897-0 (Version None)
Quarter: 2011Q1

REPORT INFORMATION
  Report Type: 
  Country: None (occurrence: None)
  Receive Date: 20110204
  Receipt Date: 20110119
  Transmission Date: 20110831
  Serious: Yes (Hospitalization)
  Sender: FDA-Public Use
  Company Number: 2011AT000034

PATIENT
  Age: 80 Year
  Sex: Female

DRUGS (2)
  1. CLOPIDOGREL [Concomitant]
  2. ALPROSTADIL [Suspect]
     Indication: PRODUCT USED FOR UNKNOWN INDICATION
     Dates: start: 20101201

REACTIONS (7)
  - HEPATOMEGALY [None]
  - DYSPNOEA [None]
  - BACK PAIN [None]
  - PNEUMONIA [None]
  - OEDEMA [None]
  - PAIN [None]
  - MYOCARDIAL INFARCTION [None]
